FAERS Safety Report 15551546 (Version 1)
Quarter: 2018Q4

REPORT INFORMATION
  Report Type: Spontaneous
  Country: DK (occurrence: DK)
  Receive Date: 20181025
  Receipt Date: 20181025
  Transmission Date: 20190205
  Serious: Yes (Hospitalization)
  Sender: FDA-Public Use
  Company Number: DK-EISAI MEDICAL RESEARCH-EC-2018-046638

PATIENT
  Age: 53 Year
  Sex: Female

DRUGS (1)
  1. HALAVEN [Suspect]
     Active Substance: ERIBULIN MESYLATE
     Indication: HEPATIC CANCER RECURRENT
     Route: 041
     Dates: start: 20171130

REACTIONS (1)
  - Generalised oedema [Recovered/Resolved]

NARRATIVE: CASE EVENT DATE: 201712
